FAERS Safety Report 23802126 (Version 2)
Quarter: 2024Q3

REPORT INFORMATION
  Report Type: Report from Study
  Country: US (occurrence: US)
  Receive Date: 20240501
  Receipt Date: 20240703
  Transmission Date: 20241016
  Serious: Yes (Hospitalization, Other)
  Sender: ABBVIE
  Company Number: US-ABBVIE-5736068

PATIENT
  Age: 73 Year
  Sex: Male

DRUGS (2)
  1. RINVOQ [Suspect]
     Active Substance: UPADACITINIB
     Indication: Dermatitis atopic
     Route: 048
     Dates: start: 20231001
  2. RINVOQ [Suspect]
     Active Substance: UPADACITINIB
     Indication: Dermatitis atopic
     Route: 048

REACTIONS (7)
  - Malignant joint neoplasm [Unknown]
  - Hepatic enzyme increased [Recovering/Resolving]
  - Lung disorder [Recovering/Resolving]
  - Lymphadenopathy [Unknown]
  - Pneumonia [Recovering/Resolving]
  - Splenomegaly [Unknown]
  - Coccidioidomycosis [Recovering/Resolving]

NARRATIVE: CASE EVENT DATE: 20240310
